FAERS Safety Report 4563054-8 (Version None)
Quarter: 2005Q1

REPORT INFORMATION
  Report Type: 
  Country: None (occurrence: None)
  Receive Date: 20050125
  Receipt Date: 20050125
  Transmission Date: 20050727
  Serious: No
  Sender: FDA-Public Use
  Company Number: 9738

PATIENT
  Sex: Male

DRUGS (3)
  1. VINBLASTINE SULFATE [Suspect]
     Indication: TESTIS CANCER
  2. BLEOMYCIN [Suspect]
     Indication: TESTIS CANCER
  3. METHOTREXATE [Suspect]
     Indication: TESTIS CANCER

REACTIONS (2)
  - CANCER PAIN [None]
  - THERAPY NON-RESPONDER [None]
